FAERS Safety Report 21396773 (Version 3)
Quarter: 2022Q4

REPORT INFORMATION
  Report Type: Report from Study
  Country: CN (occurrence: CN)
  Receive Date: 20220930
  Receipt Date: 20221221
  Transmission Date: 20230112
  Serious: Yes (Hospitalization, Other)
  Sender: FDA-Public Use
  Company Number: CN-TAKEDA-2022TUS068146

PATIENT
  Age: 37 Year
  Sex: Male
  Weight: 54.5 kg

DRUGS (5)
  1. VEDOLIZUMAB [Suspect]
     Active Substance: VEDOLIZUMAB
     Indication: Colitis ulcerative
     Dosage: 300 MILLIGRAM
     Route: 042
     Dates: start: 20220325
  2. MESALAMINE [Concomitant]
     Active Substance: MESALAMINE
     Indication: Colitis ulcerative
     Dosage: UNK
     Dates: start: 20210429
  3. BACILLUS LICHENIFORMIS CAPSULE,LIVE [Concomitant]
     Indication: Inflammatory bowel disease
     Dosage: 50 MILLIGRAM, TID
     Route: 048
     Dates: start: 20210429
  4. MESALAMINE [Concomitant]
     Active Substance: MESALAMINE
     Indication: Inflammatory bowel disease
     Dosage: 2000 MILLIGRAM, BID
     Route: 048
     Dates: start: 20210429
  5. METRONIDAZOLE [Concomitant]
     Active Substance: METRONIDAZOLE
     Indication: Inflammatory bowel disease
     Dosage: 200 MILLIGRAM, TID
     Route: 048
     Dates: start: 20220712

REACTIONS (1)
  - Large intestine infection [Recovering/Resolving]

NARRATIVE: CASE EVENT DATE: 20220627
